FAERS Safety Report 21767963 (Version 1)
Quarter: 2022Q4

REPORT INFORMATION
  Report Type: Spontaneous
  Country: US (occurrence: US)
  Receive Date: 20221222
  Receipt Date: 20221222
  Transmission Date: 20230113
  Serious: No
  Sender: FDA-Public Use
  Company Number: US-SEATTLE GENETICS-2022SGN09309

PATIENT
  Sex: Female

DRUGS (2)
  1. TIVDAK [Suspect]
     Active Substance: TISOTUMAB VEDOTIN-TFTV
     Indication: Product used for unknown indication
     Dosage: 1.3 MG/KG
     Route: 065
     Dates: start: 202205
  2. TIVDAK [Suspect]
     Active Substance: TISOTUMAB VEDOTIN-TFTV
     Dosage: 2 MG/KG
     Route: 065
     Dates: start: 202207

REACTIONS (2)
  - Dermatitis psoriasiform [Unknown]
  - Skin toxicity [Unknown]
